FAERS Safety Report 18481414 (Version 1)
Quarter: 2020Q4

REPORT INFORMATION
  Report Type: Spontaneous
  Country: JP (occurrence: JP)
  Receive Date: 20201109
  Receipt Date: 20201109
  Transmission Date: 20210114
  Serious: Yes (Hospitalization)
  Sender: FDA-Public Use
  Company Number: JP-DSJP-DSJ-2020-131918

PATIENT
  Age: 39 Year
  Sex: Male

DRUGS (3)
  1. ASPIRIN                            /00002701/ [Concomitant]
     Active Substance: ASPIRIN
     Indication: CORONARY ARTERY THROMBOSIS
     Dosage: 100MG/DAY
     Route: 065
  2. WARFARIN                           /00014803/ [Concomitant]
     Active Substance: WARFARIN
     Dosage: UNK
     Route: 065
  3. EFIENT [Suspect]
     Active Substance: PRASUGREL HYDROCHLORIDE
     Indication: CORONARY ARTERY THROMBOSIS
     Dosage: 3.75 MG, QD
     Route: 065

REACTIONS (2)
  - Coronary artery thrombosis [Recovering/Resolving]
  - Renal vascular thrombosis [Recovering/Resolving]

NARRATIVE: CASE EVENT DATE: 201702
